FAERS Safety Report 4502441-0 (Version None)
Quarter: 2004Q4

REPORT INFORMATION
  Report Type: 
  Country: None (occurrence: None)
  Receive Date: 20041112
  Receipt Date: 20041027
  Transmission Date: 20050328
  Serious: Yes (Death)
  Sender: FDA-Public Use
  Company Number: 2004-121910-NL

PATIENT
  Age: 78 Year
  Sex: Male

DRUGS (5)
  1. DANAPAROID SODIUM [Suspect]
     Indication: DISSEMINATED INTRAVASCULAR COAGULATION
     Dosage: 2500 ANTI_XA
     Route: 042
     Dates: start: 20040203, end: 20040215
  2. RIFAMPICIN [Concomitant]
  3. PYRAZINAMIDE [Concomitant]
  4. ISONIAZID [Concomitant]
  5. ETHAMBUTOL [Concomitant]

REACTIONS (5)
  - CARDIOPULMONARY FAILURE [None]
  - GASTROINTESTINAL HAEMORRHAGE [None]
  - HAEMOPTYSIS [None]
  - PLEURAL EFFUSION [None]
  - RESPIRATORY FAILURE [None]
